FAERS Safety Report 14183319 (Version 2)
Quarter: 2022Q1

REPORT INFORMATION
  Report Type: Report from Study
  Country: FR (occurrence: FR)
  Receive Date: 20171113
  Receipt Date: 20220130
  Transmission Date: 20220423
  Serious: Yes (Hospitalization, Other)
  Sender: FDA-Public Use
  Company Number: FR-JAZZ-2017-FR-014928

PATIENT

DRUGS (10)
  1. DEFITELIO [Suspect]
     Active Substance: DEFIBROTIDE SODIUM
     Indication: Venoocclusive disease
     Dosage: 1480 MG, QD
     Route: 042
     Dates: start: 20150512, end: 20150624
  2. INEXIUM                            /01479302/ [Concomitant]
     Indication: Drug therapy
     Dosage: 20 MG, QD
     Route: 048
     Dates: start: 20150310, end: 20150617
  3. VALACYCLOVIR HYDROCHLORIDE [Concomitant]
     Active Substance: VALACYCLOVIR HYDROCHLORIDE
     Indication: Antiviral treatment
     Dosage: 1G
     Route: 048
     Dates: start: 20150310, end: 20160321
  4. NEORAL [Concomitant]
     Active Substance: CYCLOSPORINE
     Indication: Immunosuppressant drug therapy
     Dosage: 130 MG, QD
     Route: 048
     Dates: start: 20150317, end: 20150828
  5. NOXAFIL [Concomitant]
     Active Substance: POSACONAZOLE
     Indication: Antifungal treatment
     Dosage: 600MG
     Route: 048
     Dates: start: 20150320, end: 20150723
  6. SOLUPRED                           /00016201/ [Concomitant]
     Indication: Steroid therapy
     Dosage: 40MG
     Route: 048
     Dates: start: 20150331, end: 20150617
  7. AMOXICILLIN [Concomitant]
     Active Substance: AMOXICILLIN
     Indication: Antibiotic therapy
     Dosage: 1G
     Route: 048
     Dates: start: 20150406, end: 201604
  8. BACTRIM [Concomitant]
     Active Substance: SULFAMETHOXAZOLE\TRIMETHOPRIM
     Indication: Antibiotic therapy
     Dosage: 2400 MG, QD
     Route: 048
     Dates: start: 20150417, end: 20150924
  9. HYDROCORTISONE [Concomitant]
     Active Substance: HYDROCORTISONE
     Indication: Steroid therapy
     Dosage: 20MG
     Route: 048
     Dates: start: 20150504, end: 201605
  10. FUROSEMIDE [Concomitant]
     Active Substance: FUROSEMIDE
     Indication: Product used for unknown indication
     Dosage: 60 MG, QD
     Route: 048
     Dates: start: 20150506

REACTIONS (4)
  - Venoocclusive disease [Recovered/Resolved]
  - Oedema [Recovered/Resolved]
  - Thrombocytopenia [Recovered/Resolved]
  - Cystitis haemorrhagic [Recovered/Resolved]

NARRATIVE: CASE EVENT DATE: 20150512
